FAERS Safety Report 10211592 (Version 2)
Quarter: 2014Q2

REPORT INFORMATION
  Report Type: Spontaneous
  Country: US (occurrence: US)
  Receive Date: 20140602
  Receipt Date: 20140605
  Transmission Date: 20141212
  Serious: Yes (Hospitalization, Other)
  Sender: FDA-Public Use
  Company Number: US-GILEAD-2014-0103894

PATIENT
  Sex: Female

DRUGS (15)
  1. LETAIRIS [Suspect]
     Indication: PULMONARY HYPERTENSION
     Dosage: 10 MG, QD
     Route: 065
     Dates: start: 20120106
  2. LETAIRIS [Suspect]
     Dosage: 10 MG, UNK
     Dates: start: 20090518
  3. CYMBALTA [Concomitant]
  4. LIPITOR [Concomitant]
  5. WELLBUTRIN [Concomitant]
  6. METOCLOPRAMIDE [Concomitant]
  7. XANAX [Concomitant]
  8. NEXIUM                             /01479302/ [Concomitant]
  9. VITAMIN D3 [Concomitant]
  10. LASIX                              /00032601/ [Concomitant]
  11. MAGNESIUM [Concomitant]
  12. METOPROLOL TARTRATE [Concomitant]
  13. ELIQUIS [Concomitant]
  14. NORCO [Concomitant]
  15. AMIODARONE [Concomitant]

REACTIONS (3)
  - Malaise [Unknown]
  - Malaise [Unknown]
  - Unevaluable event [Unknown]
